FAERS Safety Report 6946459-7 (Version None)
Quarter: 2010Q3

REPORT INFORMATION
  Report Type: 
  Country: None (occurrence: None)
  Receive Date: 20100827
  Receipt Date: 20090729
  Transmission Date: 20110219
  Serious: No
  Sender: FDA-Public Use
  Company Number: US-ABBOTT-09P-163-0588448-00

PATIENT
  Sex: Male
  Weight: 118.95 kg

DRUGS (6)
  1. NIASPAN [Suspect]
     Indication: BLOOD CHOLESTEROL INCREASED
     Dates: start: 20080801, end: 20081001
  2. SIMCOR [Suspect]
     Indication: BLOOD CHOLESTEROL INCREASED
     Dosage: 1000/20MG DAILY
     Dates: start: 20081101
  3. METFORMIN [Concomitant]
     Indication: DIABETES MELLITUS
     Dosage: ONE AT NIGHT
  4. LISINOPRIL [Concomitant]
     Indication: HYPERTENSION
  5. NEXIUM [Concomitant]
     Indication: GASTROOESOPHAGEAL REFLUX DISEASE
     Dosage: DAILY
  6. ZOCOR [Concomitant]
     Indication: BLOOD CHOLESTEROL INCREASED
     Dosage: 1 IN 1 DAYS IN THE AM WITH THE NIASPAN
     Dates: start: 20080801, end: 20081001

REACTIONS (3)
  - ARTHRITIS [None]
  - EXOSTOSIS [None]
  - NECK PAIN [None]
